FAERS Safety Report 8392974-1 (Version None)
Quarter: 2012Q2

REPORT INFORMATION
  Report Type: 
  Country: None (occurrence: None)
  Receive Date: 20120529
  Receipt Date: 20120514
  Transmission Date: 20120825
  Serious: Yes (Other)
  Sender: FDA-Public Use
  Company Number: SI-JNJFOC-20120512194

PATIENT
  Age: 55 Year
  Sex: Male
  Weight: 82 kg

DRUGS (10)
  1. TRAMADOL HYDROCHLORIDE AND ACETAMINOPHEN [Concomitant]
  2. REMICADE [Suspect]
     Route: 042
     Dates: start: 20111123
  3. ROCALTROL [Concomitant]
  4. CILAZIL [Concomitant]
  5. REMICADE [Suspect]
     Indication: ANKYLOSING SPONDYLITIS
     Route: 042
     Dates: start: 20081020
  6. LYRICA [Concomitant]
  7. MICARDIS [Concomitant]
  8. CALCIUM CARBONATE [Concomitant]
  9. INSULIN GLARGINE [Concomitant]
  10. ULTOP [Concomitant]

REACTIONS (3)
  - NEPHROLITHIASIS [None]
  - ABDOMINAL PAIN [None]
  - HAEMATURIA [None]
